FAERS Safety Report 7020652-X (Version None)
Quarter: 2010Q3

REPORT INFORMATION
  Report Type: 
  Country: None (occurrence: None)
  Receive Date: 20100929
  Receipt Date: 20100727
  Transmission Date: 20110219
  Serious: Yes (Other)
  Sender: FDA-Public Use
  Company Number: B0676678A

PATIENT
  Age: 70 Year
  Sex: Female

DRUGS (4)
  1. CARVEDILOL [Suspect]
     Indication: HYPERTENSION
     Dosage: 12.5MG TWICE PER DAY
     Route: 048
  2. LEXOTANIL [Suspect]
     Indication: SEDATION
     Route: 048
  3. KARVEZIDE [Concomitant]
  4. AMLODIPINE [Concomitant]

REACTIONS (3)
  - HYPERTENSION [None]
  - NIGHTMARE [None]
  - SOMNOLENCE [None]
